FAERS Safety Report 4271793-1 (Version None)
Quarter: 2004Q1

REPORT INFORMATION
  Report Type: 
  Country: None (occurrence: None)
  Receive Date: 20040115
  Receipt Date: 20031211
  Transmission Date: 20041129
  Serious: Yes (Other)
  Sender: FDA-Public Use
  Company Number: JP-GLAXOSMITHKLINE-B0316790A

PATIENT
  Age: 54 Year
  Sex: Male
  Weight: 54 kg

DRUGS (9)
  1. ZEFIX [Suspect]
     Indication: HEPATIC CIRRHOSIS
     Dosage: 100MG PER DAY
     Route: 048
     Dates: start: 20010309
  2. FAMOTIDINE [Concomitant]
     Indication: GASTRITIS
     Dosage: 40MG PER DAY
     Route: 048
     Dates: start: 20020510
  3. URSODESOXYCHOLIC ACID [Concomitant]
     Indication: HEPATIC CIRRHOSIS
     Dosage: 600MG PER DAY
     Route: 048
     Dates: start: 20020510
  4. L-ASPARTATE POTASSIUM [Concomitant]
     Indication: HYPOKALAEMIA
     Dosage: 600MG PER DAY
     Route: 048
     Dates: start: 20020809
  5. INTERFERON ALFA [Concomitant]
     Indication: HEPATIC CIRRHOSIS
     Route: 030
     Dates: start: 20030322
  6. MONOAMMONIUM GLYCYRRHIZINATE [Concomitant]
     Indication: HEPATIC CIRRHOSIS
     Route: 042
     Dates: start: 20020308
  7. GLYCINE HCL [Concomitant]
     Indication: HEPATIC CIRRHOSIS
     Route: 042
     Dates: start: 20020308
  8. L-CYSTEINE [Concomitant]
     Indication: HEPATIC CIRRHOSIS
     Route: 042
     Dates: start: 20020308
  9. STRONGER NEO-MINOPHAGEN C [Concomitant]
     Indication: HEPATIC CIRRHOSIS
     Route: 042
     Dates: start: 20020308

REACTIONS (7)
  - CONDITION AGGRAVATED [None]
  - GASTRITIS [None]
  - HEPATIC CIRRHOSIS [None]
  - HEPATIC NEOPLASM MALIGNANT [None]
  - HEPATITIS [None]
  - HYPOKALAEMIA [None]
  - LABORATORY TEST ABNORMAL [None]
